FAERS Safety Report 8443024-X (Version None)
Quarter: 2012Q2

REPORT INFORMATION
  Report Type: 
  Country: None (occurrence: None)
  Receive Date: 20120615
  Receipt Date: 20120613
  Transmission Date: 20120825
  Serious: Yes (Hospitalization)
  Sender: FDA-Public Use
  Company Number: PHHY2012DK016600

PATIENT
  Sex: Male
  Weight: 74 kg

DRUGS (10)
  1. METHOTREXATE [Suspect]
     Indication: RHEUMATOID ARTHRITIS
     Route: 048
     Dates: start: 20040206, end: 20110220
  2. REMICADE [Suspect]
  3. ASPIRIN [Concomitant]
  4. BUPRENORPHINE HCL [Concomitant]
  5. ALENDRONATE SODIUM [Concomitant]
  6. EMPERAL [Concomitant]
  7. TRAMADOL HCL [Concomitant]
  8. REMICADE [Suspect]
     Indication: RHEUMATOID ARTHRITIS
     Dosage: 200 MG IN WEEK 0, 2, 6 AND 8,
     Dates: start: 20100120, end: 20110517
  9. FOLIMET [Concomitant]
  10. MANDOLGIN [Concomitant]

REACTIONS (2)
  - LUNG ADENOCARCINOMA [None]
  - MUSCULOSKELETAL CHEST PAIN [None]
